FAERS Safety Report 21527493 (Version 2)
Quarter: 2023Q1

REPORT INFORMATION
  Report Type: Spontaneous
  Country: CA (occurrence: CA)
  Receive Date: 20221031
  Receipt Date: 20230201
  Transmission Date: 20230418
  Serious: Yes (Life-Threatening, Disabling, Other)
  Sender: FDA-Public Use
  Company Number: None

PATIENT
  Age: 15 Year
  Sex: Male
  Weight: 68 kg

DRUGS (50)
  1. BORTEZOMIB [Suspect]
     Active Substance: BORTEZOMIB
     Indication: Lymphoma
     Dosage: INTRAVENOUS BOLUS
  2. DOXORUBICIN [Suspect]
     Active Substance: DOXORUBICIN
     Indication: Lymphoma
     Route: 042
  3. METHOTREXATE [Suspect]
     Active Substance: METHOTREXATE
     Indication: Lymphoma
     Route: 042
  4. CYCLOPHOSPHAMIDE [Suspect]
     Active Substance: CYCLOPHOSPHAMIDE
     Indication: Lymphoma
     Route: 042
  5. DEXAMETHASONE [Suspect]
     Active Substance: DEXAMETHASONE
     Indication: Lymphoma
     Dosage: INTRAARTICULAR, 1 EVERY 12 HOURS
     Route: 042
  6. PEGASPARGASE [Suspect]
     Active Substance: PEGASPARGASE
     Indication: Lymphoma
  7. ADCETRIS [Suspect]
     Active Substance: BRENTUXIMAB VEDOTIN
     Indication: Lymphoma
     Dosage: POWDER FOR SOLUTION
     Route: 042
  8. VELCADE [Suspect]
     Active Substance: BORTEZOMIB
     Indication: Lymphoma
     Dosage: POWDER FOR SOLUTION INTRAVENOUS, INTRAVENOUS BOLUS, 1 EVERY 1 DAYS, SINGLE USE VIAL
  9. AMLODIPINE [Concomitant]
     Active Substance: AMLODIPINE BESYLATE
     Route: 065
  10. BECLOMETHASONE [Concomitant]
     Active Substance: BECLOMETHASONE
  11. BISACODYL [Concomitant]
     Active Substance: BISACODYL
  12. CALCIUM\CHOLECALCIFEROL [Concomitant]
     Active Substance: CALCIUM\CHOLECALCIFEROL
  13. CEFTAZIDIME [Concomitant]
     Active Substance: CEFTAZIDIME
     Dosage: POWDER FOR SOLUTION
  14. CIPROFLOXACIN [Concomitant]
     Active Substance: CIPROFLOXACIN
  15. CYCLOBENZAPRINE [Concomitant]
     Active Substance: CYCLOBENZAPRINE
  16. DICYCLOMINE HYDROCHLORIDE [Concomitant]
     Active Substance: DICYCLOMINE HYDROCHLORIDE
  17. DIMENHYDRINATE [Concomitant]
     Active Substance: DIMENHYDRINATE
  18. DIPHENHYDRAMINE [Concomitant]
     Active Substance: DIPHENHYDRAMINE
  19. ENOXAPARIN [Concomitant]
     Active Substance: ENOXAPARIN
  20. FAMOTIDINE [Concomitant]
     Active Substance: FAMOTIDINE
  21. FENTANYL [Concomitant]
     Active Substance: FENTANYL
  22. FILGRASTIM [Concomitant]
     Active Substance: FILGRASTIM
  23. FLUCONAZOLE [Concomitant]
     Active Substance: FLUCONAZOLE
  24. FUROSEMIDE [Concomitant]
     Active Substance: FUROSEMIDE
  25. HYDROCORTISONE [Concomitant]
     Active Substance: HYDROCORTISONE
  26. LANSOPRAZOLE [Concomitant]
     Active Substance: LANSOPRAZOLE
     Dosage: CAPSULE, DELAYED RELEASE
  27. LEUCOVORIN [Concomitant]
     Active Substance: LEUCOVORIN
  28. LORAZEPAM [Concomitant]
     Active Substance: LORAZEPAM
     Route: 065
  29. MAGNESIUM [Concomitant]
     Active Substance: MAGNESIUM
  30. MELATONIN [Concomitant]
     Active Substance: MELATONIN
  31. MEROPENEM [Concomitant]
     Active Substance: MEROPENEM
     Dosage: POWDER FOR SOLUTION
     Route: 042
  32. METOCLOPRAMIDE [Concomitant]
     Active Substance: METOCLOPRAMIDE
  33. MORPHINE [Concomitant]
     Active Substance: MORPHINE
  34. MYCAMINE [Concomitant]
     Active Substance: MICAFUNGIN SODIUM
     Dosage: POWDER FOR SOLUTION INTRAVENOUS
  35. NIFEDIPINE [Concomitant]
     Active Substance: NIFEDIPINE
  36. OLANZAPINE [Concomitant]
     Active Substance: OLANZAPINE
  37. ONDANSETRON [Concomitant]
     Active Substance: ONDANSETRON
  38. PANTOPRAZOLE [Concomitant]
     Active Substance: PANTOPRAZOLE
  39. POLYETHYLENE GLYCOL [Concomitant]
     Active Substance: POLYETHYLENE GLYCOL
  40. POTASSIUM CHLORIDE [Concomitant]
     Active Substance: POTASSIUM CHLORIDE
  41. RANITIDINE [Concomitant]
     Active Substance: RANITIDINE
  42. SEVELAMER [Concomitant]
     Active Substance: SEVELAMER
  43. SODIUM [Concomitant]
     Active Substance: SODIUM
  44. SODIUM PHOSPHATE [Concomitant]
     Active Substance: SODIUM PHOSPHATE
  45. SUCRALFATE [Concomitant]
     Active Substance: SUCRALFATE
  46. THIAMINE HYDROCHLORIDE [Concomitant]
     Active Substance: THIAMINE HYDROCHLORIDE
  47. SULFAMETHOXAZOLE\TRIMETHOPRIM [Concomitant]
     Active Substance: SULFAMETHOXAZOLE\TRIMETHOPRIM
  48. VANCOMYCIN [Concomitant]
     Active Substance: VANCOMYCIN
  49. ZINECARD [Concomitant]
     Active Substance: DEXRAZOXANE HYDROCHLORIDE
     Dosage: POWDER FOR SOLUTION
     Route: 042
  50. LEUCOVORIN CALCIUM [Concomitant]
     Active Substance: LEUCOVORIN CALCIUM
     Indication: Product used for unknown indication

REACTIONS (6)
  - Aplastic anaemia [Unknown]
  - Hypogonadism [Unknown]
  - Hypothyroidism [Unknown]
  - Mucosal inflammation [Unknown]
  - Pancreatitis acute [Unknown]
  - Tumour lysis syndrome [Unknown]
